FAERS Safety Report 16661510 (Version 1)
Quarter: 2019Q3

REPORT INFORMATION
  Report Type: Spontaneous
  Country: US (occurrence: US)
  Receive Date: 20190802
  Receipt Date: 20190802
  Transmission Date: 20191004
  Serious: No
  Sender: FDA-Public Use
  Company Number: US-ENDO PHARMACEUTICALS INC-2019-105463

PATIENT
  Age: 54 Year
  Sex: Male
  Weight: 97.05 kg

DRUGS (3)
  1. TESTOPEL [Suspect]
     Active Substance: TESTOSTERONE
     Dosage: 75 MG, UNKNOWN; 12 PELLETS
     Dates: start: 20180830
  2. TESTOPEL [Suspect]
     Active Substance: TESTOSTERONE
     Dosage: 75 MG, UNKNOWN; 10 PELLETS
     Dates: start: 20180521
  3. TESTOPEL [Suspect]
     Active Substance: TESTOSTERONE
     Indication: BLOOD TESTOSTERONE DECREASED
     Dosage: 75 MG, UNKNOWN; 6 PELLETS
     Dates: start: 20190321

REACTIONS (4)
  - Blood parathyroid hormone increased [Unknown]
  - Haematocrit increased [Unknown]
  - Haemoglobin increased [Unknown]
  - Prescribed overdose [Recovered/Resolved]

NARRATIVE: CASE EVENT DATE: 20180521
